FAERS Safety Report 24144833 (Version 1)
Quarter: 2024Q3

REPORT INFORMATION
  Report Type: Report from Study
  Country: US (occurrence: None)
  Receive Date: 20240729
  Receipt Date: 20240729
  Transmission Date: 20241017
  Serious: Yes (Hospitalization, Other)
  Sender: ASTRAZENECA
  Company Number: 2022A352049

PATIENT
  Age: 79 Year
  Sex: Female

DRUGS (1)
  1. DALIRESP [Suspect]
     Active Substance: ROFLUMILAST
     Indication: Chronic obstructive pulmonary disease
     Route: 048
     Dates: start: 2016

REACTIONS (6)
  - Thrombosis [Recovered/Resolved]
  - Chronic obstructive pulmonary disease [Unknown]
  - Weight fluctuation [Unknown]
  - Epistaxis [Unknown]
  - Eating disorder [Unknown]
  - Taste disorder [Unknown]

NARRATIVE: CASE EVENT DATE: 20220101
